FAERS Safety Report 8194498-3 (Version None)
Quarter: 2012Q1

REPORT INFORMATION
  Report Type: 
  Country: None (occurrence: None)
  Receive Date: 20120308
  Receipt Date: 20110331
  Transmission Date: 20120608
  Serious: No
  Sender: FDA-Public Use
  Company Number: US-GLAXOSMITHKLINE-A0920851A

PATIENT
  Age: 45 Year
  Sex: Female

DRUGS (2)
  1. NICODERM CQ [Suspect]
     Indication: EX-TOBACCO USER
  2. NICORETTE (MINT) [Suspect]
     Indication: EX-TOBACCO USER

REACTIONS (4)
  - ORAL PAIN [None]
  - APPLICATION SITE REACTION [None]
  - DRUG INEFFECTIVE [None]
  - MOUTH ULCERATION [None]
